FAERS Safety Report 24083690 (Version 1)
Quarter: 2024Q3

REPORT INFORMATION
  Report Type: Spontaneous
  Country: US (occurrence: None)
  Receive Date: 20240711
  Receipt Date: 20240711
  Transmission Date: 20241017
  Serious: Yes (Other)
  Sender: Public
  Company Number: None

PATIENT
  Age: 66 Year
  Sex: Female

DRUGS (16)
  1. AMBRISENTAN [Suspect]
     Active Substance: AMBRISENTAN
     Indication: Pulmonary arterial hypertension
     Dosage: FREQUENCY : DAILY;?
     Route: 048
     Dates: start: 20170928
  2. TADALAFIL [Concomitant]
     Active Substance: TADALAFIL
  3. ALVESCO HFA [Concomitant]
  4. DILTIAZEM [Concomitant]
     Active Substance: DILTIAZEM
  5. HYZAAR [Concomitant]
     Active Substance: HYDROCHLOROTHIAZIDE\LOSARTAN POTASSIUM
  6. LEVOTHYROXINE [Concomitant]
     Active Substance: LEVOTHYROXINE\LEVOTHYROXINE SODIUM
  7. ATORVASTATIN [Concomitant]
     Active Substance: ATORVASTATIN
  8. HUMULIN R [Concomitant]
     Active Substance: INSULIN HUMAN
  9. FLONASE [Concomitant]
     Active Substance: FLUTICASONE PROPIONATE
  10. FOSAMAX [Concomitant]
     Active Substance: ALENDRONATE SODIUM
  11. OMEPRAZOLE [Concomitant]
     Active Substance: OMEPRAZOLE
  12. SINGULAIR [Concomitant]
     Active Substance: MONTELUKAST SODIUM
  13. METFORMIN [Concomitant]
     Active Substance: METFORMIN HYDROCHLORIDE
  14. COLACE [Concomitant]
     Active Substance: DOCUSATE SODIUM
  15. VITAMIN D3 [Concomitant]
     Active Substance: CHOLECALCIFEROL
  16. CALCIUM [Concomitant]
     Active Substance: CALCIUM

REACTIONS (1)
  - Pancreatitis acute [None]

NARRATIVE: CASE EVENT DATE: 20240613
